FAERS Safety Report 6315043-0 (Version None)
Quarter: 2009Q3

REPORT INFORMATION
  Report Type: 
  Country: None (occurrence: None)
  Receive Date: 20090819
  Receipt Date: 20090811
  Transmission Date: 20100115
  Serious: Yes (Hospitalization)
  Sender: FDA-Public Use
  Company Number: US-ROCHE-649907

PATIENT
  Sex: Male

DRUGS (7)
  1. KLONOPIN [Suspect]
     Indication: TARSAL TUNNEL SYNDROME
     Dosage: OTHER INDICATION: PERIPHERAL NEUROPATHY
     Route: 048
     Dates: start: 20020101
  2. KLONOPIN [Suspect]
     Dosage: DOSE INCREASED
     Route: 048
  3. KLONOPIN [Suspect]
     Route: 048
  4. KLONOPIN [Suspect]
     Dosage: DOSE: 4 MG DAILY FOR ONE WEEK AND THEN TAPERED TO 3.5 MG DAILY
     Route: 048
     Dates: start: 20090626
  5. VALIUM [Suspect]
     Indication: DRUG USE FOR UNKNOWN INDICATION
     Route: 065
  6. XANAX [Suspect]
     Indication: ANXIETY
     Route: 065
  7. ALDACTONE [Suspect]
     Indication: DRUG USE FOR UNKNOWN INDICATION
     Route: 065

REACTIONS (16)
  - ABDOMINAL PAIN [None]
  - ABNORMAL DREAMS [None]
  - ANXIETY [None]
  - APATHY [None]
  - DIZZINESS [None]
  - DYSPHORIA [None]
  - FIBROMYALGIA [None]
  - HEADACHE [None]
  - MYOCARDIAL INFARCTION [None]
  - OEDEMA PERIPHERAL [None]
  - PAIN [None]
  - PAIN IN JAW [None]
  - PARADOXICAL DRUG REACTION [None]
  - SEDATION [None]
  - THERAPY CESSATION [None]
  - URTICARIA [None]
